FAERS Safety Report 7207499-6 (Version None)
Quarter: 2011Q1

REPORT INFORMATION
  Report Type: 
  Country: None (occurrence: None)
  Receive Date: 20110103
  Receipt Date: 20101227
  Transmission Date: 20110831
  Serious: Yes (Life-Threatening, Hospitalization, Other)
  Sender: FDA-Public Use
  Company Number: DE-ABBOTT-10P-062-0679297-00

PATIENT
  Sex: Female
  Weight: 113 kg

DRUGS (4)
  1. ANTIHYPERTENSIVES [Concomitant]
     Indication: HYPERTENSION
  2. ANALGESIC [Concomitant]
     Indication: PRODUCT USED FOR UNKNOWN INDICATION
  3. HUMIRA [Suspect]
     Indication: PSORIATIC ARTHROPATHY
     Route: 058
     Dates: start: 20100715, end: 20100928
  4. INFLUSPLIT [Concomitant]
     Indication: INFLUENZA
     Dosage: 1 INJECTION ONCE
     Dates: start: 20100902, end: 20100902

REACTIONS (3)
  - LYMPHADENOPATHY [None]
  - NEOPLASM MALIGNANT [None]
  - MONOCLONAL GAMMOPATHY [None]
